FAERS Safety Report 8720395 (Version 3)
Quarter: 2015Q2

REPORT INFORMATION
  Report Type: Spontaneous
  Country: US (occurrence: US)
  Receive Date: 20120813
  Receipt Date: 20150429
  Transmission Date: 20150821
  Serious: Yes (Other)
  Sender: FDA-Public Use
  Company Number: US-PFIZER INC-2012192455

PATIENT
  Age: 87 Year
  Sex: Female
  Weight: 65.76 kg

DRUGS (1)
  1. XALATAN [Suspect]
     Active Substance: LATANOPROST
     Indication: GLAUCOMA
     Dosage: 1 GTT, 1X/DAY, (ONE TIME EVERY EVENING)

REACTIONS (2)
  - Eye disorder [Unknown]
  - Glaucoma [Unknown]
